FAERS Safety Report 8974147 (Version 1)
Quarter: 2012Q4

REPORT INFORMATION
  Report Type: Spontaneous
  Country: IT (occurrence: None)
  Receive Date: 20121211
  Receipt Date: 20121211
  Transmission Date: 20130627
  Serious: No
  Sender: FDA-Public Use
  Company Number: 1211ITA008779

PATIENT
  Age: 0 Day
  Sex: Male

DRUGS (2)
  1. CEFTIBUTEN [Suspect]
     Dosage: one posological unit; Oral
     Route: 048
     Dates: start: 20120928
  2. CEFTIBUTEN [Suspect]
     Route: 048
     Dates: start: 20120928

REACTIONS (1)
  - Erythema [None]
